FAERS Safety Report 7479010-6 (Version None)
Quarter: 2011Q2

REPORT INFORMATION
  Report Type: 
  Country: None (occurrence: None)
  Receive Date: 20110513
  Receipt Date: 20110504
  Transmission Date: 20111010
  Serious: Yes (Hospitalization)
  Sender: FDA-Public Use
  Company Number: FR-JNJFOC-20110200098

PATIENT
  Sex: Male
  Weight: 68.6 kg

DRUGS (5)
  1. STELARA [Suspect]
     Route: 058
  2. METHOTREXATE [Suspect]
     Indication: PSORIASIS
  3. ACETAMINOPHEN [Concomitant]
     Route: 048
  4. STELARA [Suspect]
     Indication: PSORIASIS
     Route: 058
  5. STELARA [Suspect]
     Route: 058

REACTIONS (1)
  - PILONIDAL CYST [None]
